FAERS Safety Report 22095895 (Version 1)
Quarter: 2023Q1

REPORT INFORMATION
  Report Type: Report from Study
  Country: CO (occurrence: CO)
  Receive Date: 20230315
  Receipt Date: 20230315
  Transmission Date: 20230418
  Serious: Yes (Hospitalization)
  Sender: FDA-Public Use
  Company Number: CO-ABBVIE-4339288

PATIENT
  Age: 66 Year
  Sex: Female

DRUGS (1)
  1. SKYRIZI [Suspect]
     Active Substance: RISANKIZUMAB-RZAA
     Indication: Psoriasis
     Dates: start: 20211126, end: 20220805

REACTIONS (4)
  - Hypertension [Recovered/Resolved]
  - Memory impairment [Not Recovered/Not Resolved]
  - Psoriasis [Not Recovered/Not Resolved]
  - Diabetes mellitus [Recovered/Resolved]

NARRATIVE: CASE EVENT DATE: 20220901
